FAERS Safety Report 13342550 (Version 3)
Quarter: 2017Q2

REPORT INFORMATION
  Report Type: Report from Study
  Country: US (occurrence: US)
  Receive Date: 20170316
  Receipt Date: 20170414
  Transmission Date: 20170830
  Serious: Yes (Death, Hospitalization)
  Sender: FDA-Public Use
  Company Number: US-JNJFOC-20170216860

PATIENT
  Age: 71 Year
  Sex: Male

DRUGS (9)
  1. MULTIVITAMINS [Concomitant]
     Active Substance: VITAMINS
  2. PREVACID [Concomitant]
     Active Substance: LANSOPRAZOLE
  3. VALSARTAN. [Concomitant]
     Active Substance: VALSARTAN
  4. VICODIN [Concomitant]
     Active Substance: ACETAMINOPHEN\HYDROCODONE BITARTRATE
  5. SAW PALMETO [Concomitant]
  6. IMBRUVICA [Suspect]
     Active Substance: IBRUTINIB
     Indication: CHRONIC LYMPHOCYTIC LEUKAEMIA
     Route: 048
     Dates: start: 20161231, end: 201702
  7. ASPIRIN. [Concomitant]
     Active Substance: ASPIRIN
  8. IMBRUVICA [Suspect]
     Active Substance: IBRUTINIB
     Indication: B-CELL LYMPHOMA
     Route: 048
     Dates: start: 20161231, end: 201702
  9. OXYBUTYNIN CHLORIDE. [Concomitant]
     Active Substance: OXYBUTYNIN CHLORIDE

REACTIONS (24)
  - Haemorrhagic stroke [Fatal]
  - Pyrexia [Unknown]
  - Dizziness [Unknown]
  - Sepsis [Unknown]
  - Atrial fibrillation [Unknown]
  - Dyspnoea [Fatal]
  - Cough [Unknown]
  - Multiple organ dysfunction syndrome [Fatal]
  - Acute kidney injury [Unknown]
  - Disseminated intravascular coagulation [Unknown]
  - Respiratory failure [Fatal]
  - Ischaemic stroke [Unknown]
  - Haemolytic anaemia [Unknown]
  - Lung infiltration [Unknown]
  - Fall [Unknown]
  - Lymphocytosis [Unknown]
  - Malnutrition [Unknown]
  - Nervous system disorder [Unknown]
  - Oxygen saturation decreased [Unknown]
  - Thrombocytopenia [Unknown]
  - Acute myocardial infarction [Fatal]
  - Chest discomfort [Fatal]
  - Pneumonia [Unknown]
  - Dehydration [Not Recovered/Not Resolved]

NARRATIVE: CASE EVENT DATE: 201702
